FAERS Safety Report 7407346-3 (Version None)
Quarter: 2011Q2

REPORT INFORMATION
  Report Type: 
  Country: None (occurrence: None)
  Receive Date: 20110411
  Receipt Date: 20110329
  Transmission Date: 20111010
  Serious: Yes (Death, Hospitalization, Other)
  Sender: FDA-Public Use
  Company Number: US-ELI_LILLY_AND_COMPANY-US201012004263

PATIENT
  Sex: Female

DRUGS (1)
  1. FORTEO [Suspect]
     Dosage: 20 UG, UNK

REACTIONS (8)
  - CERVICAL CYST [None]
  - INTESTINAL OBSTRUCTION [None]
  - HOSPITALISATION [None]
  - PAPILLARY SEROUS ENDOMETRIAL CARCINOMA [None]
  - ADENOMYOSIS [None]
  - ENDOMETRIAL DISORDER [None]
  - OVARIAN CANCER [None]
  - DEATH [None]
